FAERS Safety Report 5234294-X (Version None)
Quarter: 2007Q1

REPORT INFORMATION
  Report Type: 
  Country: None (occurrence: None)
  Receive Date: 20070209
  Receipt Date: 20070201
  Transmission Date: 20070707
  Serious: Yes (Other)
  Sender: FDA-Public Use
  Company Number: GB-AVENTIS-200710961GDDC

PATIENT
  Age: 47 Year
  Sex: Female
  Weight: 90 kg

DRUGS (2)
  1. TELFAST                            /01314201/ [Suspect]
     Indication: RASH
     Route: 048
     Dates: start: 20060829, end: 20060831
  2. IBUPROFEN [Concomitant]

REACTIONS (1)
  - THROAT TIGHTNESS [None]
